FAERS Safety Report 10953311 (Version 1)
Quarter: 2015Q1

REPORT INFORMATION
  Report Type: Spontaneous
  Country: US (occurrence: US)
  Receive Date: 20150325
  Receipt Date: 20150325
  Transmission Date: 20150721
  Serious: No
  Sender: FDA-Public Use
  Company Number: US-PFIZER INC-2015099983

PATIENT
  Age: 71 Year
  Sex: Female
  Weight: 90.7 kg

DRUGS (6)
  1. LYRICA [Suspect]
     Active Substance: PREGABALIN
     Indication: ARTHRITIS
     Dosage: 50 MG, 2X/DAY
  2. TRAMADOL [Concomitant]
     Active Substance: TRAMADOL
     Indication: HEADACHE
  3. TRAMADOL [Concomitant]
     Active Substance: TRAMADOL
     Indication: MIGRAINE
  4. TYLENOL [Concomitant]
     Active Substance: ACETAMINOPHEN
     Indication: HEADACHE
     Dosage: UNK
  5. LYRICA [Suspect]
     Active Substance: PREGABALIN
     Indication: MYALGIA
     Dosage: 200 MG, UNK
  6. TRAMADOL [Concomitant]
     Active Substance: TRAMADOL
     Indication: PAIN
     Dosage: UNK, 2X/DAY

REACTIONS (4)
  - Product use issue [Unknown]
  - Arthralgia [Unknown]
  - Intentional product misuse [Unknown]
  - Muscle spasms [Unknown]
